FAERS Safety Report 8776695 (Version 2)
Quarter: 2012Q4

REPORT INFORMATION
  Report Type: 
  Country: CA (occurrence: CA)
  Receive Date: 20120910
  Receipt Date: 20120914
  Transmission Date: 20130627
  Serious: Yes (Other)
  Sender: FDA-Public Use
  Company Number: PHHY2012CA077646

PATIENT
  Sex: Female

DRUGS (1)
  1. PAMIDRONATE [Suspect]
     Indication: BREAST CANCER METASTATIC
     Dosage: UNK
     Route: 042
     Dates: end: 20120820

REACTIONS (7)
  - Spinal fracture [Unknown]
  - Back pain [Unknown]
  - Pelvic pain [Unknown]
  - Renal impairment [Unknown]
  - Pain [Unknown]
  - Metastases to pelvis [Unknown]
  - Blood calcium increased [Unknown]
